FAERS Safety Report 25897894 (Version 1)
Quarter: 2025Q4

REPORT INFORMATION
  Report Type: Spontaneous
  Country: BR (occurrence: BR)
  Receive Date: 20251008
  Receipt Date: 20251008
  Transmission Date: 20260118
  Serious: Yes (Other)
  Sender: ELI LILLY AND COMPANY
  Company Number: BR-Merck Healthcare KGaA-2025049843

PATIENT
  Sex: Male

DRUGS (4)
  1. ERBITUX [Suspect]
     Active Substance: CETUXIMAB
     Indication: Rectal cancer metastatic
     Dosage: UNK, 2/M
     Route: 042
     Dates: start: 2022
  2. FLUOROURACIL [Concomitant]
     Active Substance: FLUOROURACIL
     Indication: Rectal cancer metastatic
     Dosage: UNK
  3. LEUCOVORIN [Concomitant]
     Active Substance: LEUCOVORIN\LEUCOVORIN CALCIUM
     Indication: Rectal cancer metastatic
     Dosage: UNK
  4. IRINOTECAN [Concomitant]
     Active Substance: IRINOTECAN
     Indication: Rectal cancer metastatic
     Dosage: UNK

REACTIONS (3)
  - Malignant neoplasm progression [Not Recovered/Not Resolved]
  - Tumour perforation [Not Recovered/Not Resolved]
  - Off label use [Unknown]

NARRATIVE: CASE EVENT DATE: 20220101
